FAERS Safety Report 14526345 (Version 11)
Quarter: 2018Q3

REPORT INFORMATION
  Report Type: Spontaneous
  Country: CA (occurrence: CA)
  Receive Date: 20180213
  Receipt Date: 20180904
  Transmission Date: 20181010
  Serious: Yes (Hospitalization)
  Sender: FDA-Public Use
  Company Number: CA-CELLTRION INC.-2017CA015177

PATIENT

DRUGS (9)
  1. INFLECTRA [Suspect]
     Active Substance: INFLIXIMAB-DYYB
     Dosage: 400 MG, CYCLIC (EVERY 8 WEEKS)
     Route: 042
     Dates: start: 20180402
  2. ACETAMINOPHEN. [Concomitant]
     Active Substance: ACETAMINOPHEN
     Dosage: UNK
  3. INFLECTRA [Suspect]
     Active Substance: INFLIXIMAB-DYYB
     Dosage: 400 MG, CYCLIC (EVERY 8 WEEKS)
     Route: 042
     Dates: start: 20180213
  4. INFLECTRA [Suspect]
     Active Substance: INFLIXIMAB-DYYB
     Indication: ANKYLOSING SPONDYLITIS
     Dosage: 400 MG, CYCLIC (EVERY 0, 2, 6 WEEKS, THEN EVERY 8 WEEKS)
     Route: 042
     Dates: start: 20171030, end: 20180528
  5. INFLECTRA [Suspect]
     Active Substance: INFLIXIMAB-DYYB
     Dosage: 400 MG EVERY 8 WEEKS
     Route: 042
     Dates: start: 20171212
  6. INFLECTRA [Suspect]
     Active Substance: INFLIXIMAB-DYYB
     Dosage: 400 MG, CYCLIC (EVERY 8 WEEKS)
     Route: 042
     Dates: start: 20180528
  7. INFLECTRA [Suspect]
     Active Substance: INFLIXIMAB-DYYB
     Dosage: 400 MG, CYCLIC (EVERY 8 WEEKS)
     Route: 042
     Dates: start: 20180821
  8. INFLECTRA [Suspect]
     Active Substance: INFLIXIMAB-DYYB
     Dosage: 400 MG, CYCLIC (EVERY 0, 2, 6 WEEKS, THEN EVERY 8 WEEKS)
     Route: 042
     Dates: start: 20171114
  9. INFLECTRA [Suspect]
     Active Substance: INFLIXIMAB-DYYB
     Dosage: 400 MG, CYCLIC (EVERY 8 WEEKS)
     Route: 042
     Dates: start: 20180710

REACTIONS (19)
  - Eye irritation [Unknown]
  - Feeling abnormal [Not Recovered/Not Resolved]
  - Ocular hyperaemia [Unknown]
  - Abdominal pain upper [Recovered/Resolved]
  - Dyspepsia [Unknown]
  - Transient ischaemic attack [Recovered/Resolved]
  - Drug ineffective [Not Recovered/Not Resolved]
  - Oropharyngeal pain [Not Recovered/Not Resolved]
  - Therapeutic response shortened [Not Recovered/Not Resolved]
  - Blood pressure fluctuation [Unknown]
  - Mobility decreased [Unknown]
  - Arthralgia [Unknown]
  - Chest discomfort [Unknown]
  - Headache [Not Recovered/Not Resolved]
  - Rash macular [Recovered/Resolved]
  - Erythema [Not Recovered/Not Resolved]
  - Discomfort [Not Recovered/Not Resolved]
  - Eye infection [Unknown]
  - Swelling [Unknown]

NARRATIVE: CASE EVENT DATE: 2017
